FAERS Safety Report 10040195 (Version 2)
Quarter: 2014Q2

REPORT INFORMATION
  Report Type: Spontaneous
  Country: TR (occurrence: TR)
  Receive Date: 20140327
  Receipt Date: 20140609
  Transmission Date: 20141212
  Serious: Yes (Death)
  Sender: FDA-Public Use
  Company Number: TR-AMGEN-TURSP2014020970

PATIENT
  Age: 54 Year
  Sex: Male

DRUGS (7)
  1. ENBREL [Suspect]
     Indication: RHEUMATOID ARTHRITIS
     Dosage: 25MG 2 DOSAGE (AT THE SAME DAY), WEEKLY
     Route: 058
     Dates: start: 20140313
  2. NOVOMIX [Concomitant]
     Indication: DIABETES MELLITUS
     Dosage: UNK
  3. CORASPIN [Concomitant]
     Dosage: UNK
  4. INH [Concomitant]
     Dosage: UNK
  5. DROPIA [Concomitant]
     Dosage: UNK
  6. PANAX GINSENG [Concomitant]
     Dosage: UNK
  7. PANAX [Concomitant]
     Dosage: UNK

REACTIONS (1)
  - Myocardial infarction [Fatal]
